FAERS Safety Report 15409722 (Version 1)
Quarter: 2018Q3

REPORT INFORMATION
  Report Type: Spontaneous
  Country: US (occurrence: US)
  Receive Date: 20180920
  Receipt Date: 20180920
  Transmission Date: 20181010
  Serious: No
  Sender: FDA-Public Use
  Company Number: US-009507513-1809USA007652

PATIENT
  Age: 63 Year
  Sex: Female

DRUGS (2)
  1. ALBUTEROL. [Concomitant]
     Active Substance: ALBUTEROL
  2. DULERA [Suspect]
     Active Substance: FORMOTEROL FUMARATE DIHYDRATE\MOMETASONE FUROATE
     Indication: ASTHMA

REACTIONS (3)
  - Product quality issue [Unknown]
  - Dyspnoea [Unknown]
  - Circumstance or information capable of leading to medication error [Unknown]

NARRATIVE: CASE EVENT DATE: 20180828
